FAERS Safety Report 8193762-1 (Version None)
Quarter: 2012Q1

REPORT INFORMATION
  Report Type: 
  Country: None (occurrence: None)
  Receive Date: 20120308
  Receipt Date: 20120302
  Transmission Date: 20120608
  Serious: Yes (Hospitalization)
  Sender: FDA-Public Use
  Company Number: IT-JNJFOC-20120106589

PATIENT
  Sex: Female

DRUGS (11)
  1. CEFTAZIDIME [Suspect]
     Indication: STAPHYLOCOCCAL INFECTION
     Route: 042
     Dates: start: 20110510, end: 20110524
  2. ESOMEPRAZOLE SODIUM [Concomitant]
     Route: 065
  3. ALDACTONE [Concomitant]
     Route: 065
  4. TARGOCID [Suspect]
     Indication: STAPHYLOCOCCAL INFECTION
     Route: 042
     Dates: start: 20110523, end: 20110530
  5. TOBRAMYCIN [Suspect]
     Indication: STAPHYLOCOCCAL INFECTION
     Route: 042
     Dates: start: 20110530, end: 20110610
  6. LEVOFLOXACIN [Suspect]
     Indication: STAPHYLOCOCCAL INFECTION
     Route: 042
     Dates: start: 20110510, end: 20110520
  7. ALLOPURINOL [Concomitant]
     Route: 065
  8. AMIODARONE HCL [Concomitant]
     Route: 065
  9. ACETYLSALICYLIC ACID SRT [Concomitant]
     Route: 065
  10. LASIX [Concomitant]
     Route: 065
  11. TARGOCID [Suspect]
     Route: 042
     Dates: start: 20110611, end: 20110620

REACTIONS (3)
  - LARGE INTESTINE PERFORATION [None]
  - MEGACOLON [None]
  - CLOSTRIDIUM DIFFICILE COLITIS [None]
